FAERS Safety Report 24361584 (Version 1)
Quarter: 2024Q3

REPORT INFORMATION
  Report Type: Spontaneous
  Country: DE (occurrence: DE)
  Receive Date: 20240925
  Receipt Date: 20240925
  Transmission Date: 20241017
  Serious: Yes (Hospitalization, Other)
  Sender: Haleon PLC
  Company Number: DE-002147023-NVSC2022DE073177

PATIENT
  Age: 60 Year
  Sex: Male
  Weight: 82.6 kg

DRUGS (17)
  1. DICLOFENAC [Suspect]
     Active Substance: DICLOFENAC
     Indication: Rheumatoid arthritis
     Dosage: 75 MG
     Route: 048
     Dates: end: 20211230
  2. METAMIZOLE [Concomitant]
     Active Substance: METAMIZOLE
     Indication: Rheumatoid arthritis
     Dates: start: 20211231, end: 20210825
  3. METAMIZOL [Concomitant]
     Active Substance: METAMIZOLE SODIUM
     Indication: Rheumatoid arthritis
     Dosage: 500 MG, (AS NEEDED)
     Route: 048
     Dates: start: 20211231, end: 20220825
  4. METHOTREXATE SODIUM [Suspect]
     Active Substance: METHOTREXATE SODIUM
     Indication: Rheumatoid arthritis
     Dosage: 10 NG, WE (QW)
  5. METOPROLOL SUCCINATE [Concomitant]
     Active Substance: METOPROLOL SUCCINATE
     Indication: Hypertension
     Dosage: 23.8 MG, QD
     Route: 048
  6. METFORMIN [Concomitant]
     Active Substance: METFORMIN HYDROCHLORIDE
     Indication: Type 2 diabetes mellitus
     Dosage: 1000 MG, QD
     Route: 048
     Dates: end: 20220808
  7. TORSEMIDE [Concomitant]
     Active Substance: TORSEMIDE
     Indication: Hypertension
     Dosage: 10 MG, QD
     Route: 048
     Dates: start: 20220528
  8. TORSEMIDE [Concomitant]
     Active Substance: TORSEMIDE
     Dosage: 10 MG, QD
     Route: 048
     Dates: end: 20220217
  9. HYDROCHLOROTHIAZIDE [Concomitant]
     Active Substance: HYDROCHLOROTHIAZIDE
     Indication: Hypertension
     Dosage: 25 MG, QD
     Route: 048
  10. AMOXICILLIN [Concomitant]
     Active Substance: AMOXICILLIN
     Indication: Infection prophylaxis
     Dosage: TIME INTERVAL: 0.33333333 DAYS: 1000 MG, TID
     Route: 048
     Dates: start: 20220528
  11. ETORICOXIB [Concomitant]
     Active Substance: ETORICOXIB
     Indication: Rheumatoid arthritis
     Dosage: 90 MG, QD
     Route: 048
     Dates: start: 20220614, end: 20220630
  12. FOLIC ACID [Concomitant]
     Active Substance: FOLIC ACID
     Indication: Prophylaxis
     Dosage: UNK
     Route: 065
     Dates: end: 20220915
  13. PREDNISOLONE [Suspect]
     Active Substance: PREDNISOLONE
     Indication: Rheumatoid arthritis
     Dosage: 10 MG, WE (QW)
     Route: 048
     Dates: start: 20220614
  14. PREDNISOLONE [Suspect]
     Active Substance: PREDNISOLONE
     Dosage: 5 MG, QD
     Route: 048
     Dates: end: 20220527
  15. INDOMETHACIN [Concomitant]
     Active Substance: INDOMETHACIN
     Indication: Rheumatoid arthritis
     Dosage: 50 MG, PRN
     Route: 065
     Dates: start: 20220317, end: 20220319
  16. UNACID [Concomitant]
     Indication: Infection prophylaxis
     Dosage: TIME INTERVAL: 0.33333333 DAYS: 3 G, TID
     Route: 042
     Dates: start: 20220519, end: 20220527
  17. IANALUMAB [Suspect]
     Active Substance: IANALUMAB
     Indication: Rheumatoid arthritis
     Dosage: TIME INTERVAL: TOTAL: 300 MG, ONCE/SINGLE
     Route: 058
     Dates: start: 20200106

REACTIONS (1)
  - Large intestinal ulcer [Recovered/Resolved]

NARRATIVE: CASE EVENT DATE: 20220317
